FAERS Safety Report 18723947 (Version 1)
Quarter: 2021Q1

REPORT INFORMATION
  Report Type: Spontaneous
  Country: US (occurrence: US)
  Receive Date: 20210109
  Receipt Date: 20210109
  Transmission Date: 20210419
  Serious: No
  Sender: FDA-Public Use
  Company Number: None

PATIENT
  Age: 26 Year
  Sex: Female
  Weight: 79.38 kg

DRUGS (1)
  1. MIRENA [Suspect]
     Active Substance: LEVONORGESTREL
     Dates: start: 20200131, end: 20201209

REACTIONS (4)
  - Vomiting [None]
  - Dizziness [None]
  - Complication of device insertion [None]
  - Pelvic pain [None]

NARRATIVE: CASE EVENT DATE: 20200201
